FAERS Safety Report 11399839 (Version 1)
Quarter: 2015Q3

REPORT INFORMATION
  Report Type: Spontaneous
  Country: US (occurrence: None)
  Receive Date: 20150818
  Receipt Date: 20150818
  Transmission Date: 20151125
  Serious: Yes (Other)
  Sender: FDA-Public Use
  Company Number: None

PATIENT
  Age: 67 Year
  Sex: Female
  Weight: 47.1 kg

DRUGS (6)
  1. FERAHEME [Suspect]
     Active Substance: FERUMOXYTOL NON-STOICHIOMETRIC MAGNETITE
     Indication: IRON DEFICIENCY ANAEMIA
     Route: 042
     Dates: start: 20150730, end: 20150730
  2. IRON [Concomitant]
     Active Substance: IRON
  3. VITAMIN [Concomitant]
     Active Substance: VITAMINS
  4. METOPROLOL [Concomitant]
     Active Substance: METOPROLOL
  5. LEVOTHYROXINE. [Concomitant]
     Active Substance: LEVOTHYROXINE
  6. IRON SUCROSE [Concomitant]
     Active Substance: IRON SUCROSE

REACTIONS (8)
  - Blood pressure decreased [None]
  - Heart rate increased [None]
  - Flushing [None]
  - Chest discomfort [None]
  - Renal pain [None]
  - Chills [None]
  - Defaecation urgency [None]
  - Infusion related reaction [None]

NARRATIVE: CASE EVENT DATE: 20150730
